FAERS Safety Report 7258627-8 (Version None)
Quarter: 2011Q1

REPORT INFORMATION
  Report Type: 
  Country: None (occurrence: None)
  Receive Date: 20110129
  Receipt Date: 20100726
  Transmission Date: 20110831
  Serious: No
  Sender: FDA-Public Use
  Company Number: US-ABBOTT-09P-163-0606132-00

PATIENT
  Sex: Female
  Weight: 115.32 kg

DRUGS (6)
  1. PERCOCET [Concomitant]
     Indication: PRODUCT USED FOR UNKNOWN INDICATION
  2. MORPHINE [Concomitant]
     Indication: PRODUCT USED FOR UNKNOWN INDICATION
     Route: 048
  3. ATENOLOL [Concomitant]
     Indication: PRODUCT USED FOR UNKNOWN INDICATION
     Route: 048
  4. FLEXERIL [Concomitant]
     Indication: PRODUCT USED FOR UNKNOWN INDICATION
  5. HUMIRA [Suspect]
     Indication: RHEUMATOID ARTHRITIS
     Dates: start: 20091001
  6. METHOTREXATE [Concomitant]
     Indication: PRODUCT USED FOR UNKNOWN INDICATION
     Route: 048

REACTIONS (9)
  - ABDOMINAL DISTENSION [None]
  - INJECTION SITE HAEMATOMA [None]
  - BLOOD PRESSURE INCREASED [None]
  - DIZZINESS [None]
  - HERPES SIMPLEX [None]
  - APHTHOUS STOMATITIS [None]
  - RASH PAPULAR [None]
  - PAIN IN EXTREMITY [None]
  - WEIGHT INCREASED [None]
